FAERS Safety Report 25846642 (Version 2)
Quarter: 2025Q4

REPORT INFORMATION
  Report Type: Spontaneous
  Country: US (occurrence: US)
  Receive Date: 20250925
  Receipt Date: 20251002
  Transmission Date: 20260118
  Serious: Yes (Death, Other)
  Sender: AMGEN
  Company Number: US-AMGEN-USASP2025184672

PATIENT
  Age: 78 Year
  Sex: Female

DRUGS (4)
  1. ETANERCEPT [Suspect]
     Active Substance: ETANERCEPT
     Indication: Toxic epidermal necrolysis
     Dosage: 50 MILLIGRAM, EVERY 4 DAYS
     Route: 065
  2. ETANERCEPT [Suspect]
     Active Substance: ETANERCEPT
     Indication: Off label use
  3. ETANERCEPT [Suspect]
     Active Substance: ETANERCEPT
     Indication: Severe cutaneous adverse reaction
  4. METHYLPREDNISOLONE [Concomitant]
     Active Substance: METHYLPREDNISOLONE
     Indication: Toxic epidermal necrolysis
     Dosage: 1 MILLIGRAM/KILOGRAM

REACTIONS (4)
  - Death [Fatal]
  - Squamous cell carcinoma of the tongue [Unknown]
  - Drug effective for unapproved indication [Unknown]
  - Off label use [Unknown]
